FAERS Safety Report 10011121 (Version 2)
Quarter: 2014Q1

REPORT INFORMATION
  Report Type: Spontaneous
  Country: US (occurrence: US)
  Receive Date: 20140314
  Receipt Date: 20140314
  Transmission Date: 20141002
  Serious: Yes (Death, Hospitalization, Other)
  Sender: FDA-Public Use
  Company Number: US-CELGENEUS-163-POMAL-13094464

PATIENT
  Age: 60 Year
  Sex: Male

DRUGS (5)
  1. POMALYST [Suspect]
     Indication: PLASMA CELL MYELOMA
     Dosage: 4 MILLIGRAM
     Route: 048
     Dates: start: 20130628, end: 20130925
  2. DEXAMETHASONE [Concomitant]
     Indication: PLASMA CELL MYELOMA
     Route: 065
     Dates: start: 201101
  3. DEXAMETHASONE [Concomitant]
     Route: 065
     Dates: start: 201205
  4. DEXAMETHASONE [Concomitant]
     Route: 065
  5. CARFILZOMIB [Concomitant]
     Indication: PLASMA CELL MYELOMA
     Route: 065

REACTIONS (1)
  - Plasma cell myeloma [Fatal]
